FAERS Safety Report 14206408 (Version 26)
Quarter: 2024Q3

REPORT INFORMATION
  Report Type: Spontaneous
  Country: US (occurrence: US)
  Receive Date: 20171120
  Receipt Date: 20240715
  Transmission Date: 20241017
  Serious: Yes (Life-Threatening, Hospitalization, Disabling, Other)
  Sender: PFIZER
  Company Number: US-PFIZER INC-2017498067

PATIENT
  Age: 80 Year
  Sex: Female
  Weight: 72.109 kg

DRUGS (3)
  1. XELJANZ [Suspect]
     Active Substance: TOFACITINIB CITRATE
     Indication: Felty^s syndrome
     Dosage: 5 MG, 2X/DAY
     Route: 048
     Dates: start: 20150722
  2. XELJANZ [Suspect]
     Active Substance: TOFACITINIB CITRATE
     Indication: Rheumatoid arthritis
     Dosage: 10 MG, DAILY
     Route: 048
  3. XELJANZ [Suspect]
     Active Substance: TOFACITINIB CITRATE
     Dosage: 5 MG, 2X/DAY
     Route: 048

REACTIONS (19)
  - Cardiac arrest [Unknown]
  - Cerebrovascular accident [Not Recovered/Not Resolved]
  - Transient ischaemic attack [Unknown]
  - Thrombosis [Unknown]
  - Mental impairment [Unknown]
  - Heart rate decreased [Unknown]
  - Intentional product misuse [Unknown]
  - Memory impairment [Unknown]
  - Hypoacusis [Unknown]
  - Decreased immune responsiveness [Unknown]
  - Fatigue [Unknown]
  - Bradykinesia [Unknown]
  - Speech disorder [Unknown]
  - Fall [Unknown]
  - Impaired work ability [Unknown]
  - Arthropathy [Unknown]
  - Confusional state [Unknown]
  - Pain [Not Recovered/Not Resolved]
  - Sciatica [Recovering/Resolving]

NARRATIVE: CASE EVENT DATE: 20150101
